FAERS Safety Report 15064160 (Version 1)
Quarter: 2018Q2

REPORT INFORMATION
  Report Type: Report from Study
  Country: US (occurrence: US)
  Receive Date: 20180625
  Receipt Date: 20180625
  Transmission Date: 20180711
  Serious: Yes (Hospitalization)
  Sender: FDA-Public Use
  Company Number: US-SHIRE-US201822191

PATIENT
  Sex: Female

DRUGS (1)
  1. CINRYZE [Suspect]
     Active Substance: HUMAN C1-ESTERASE INHIBITOR
     Indication: IMMUNE SYSTEM DISORDER
     Dosage: 1500 UNITS ON TUESDAYS AND 1000 UNITS ON FRIDAYS
     Route: 042
     Dates: start: 20130211

REACTIONS (3)
  - Prescribed overdose [Unknown]
  - Hereditary angioedema [Unknown]
  - Diarrhoea [Unknown]
